FAERS Safety Report 9690284 (Version 1)
Quarter: 2013Q4

REPORT INFORMATION
  Report Type: Spontaneous
  Country: US (occurrence: None)
  Receive Date: 20131114
  Receipt Date: 20131114
  Transmission Date: 20140711
  Serious: Yes (Hospitalization)
  Sender: FDA-Public Use
  Company Number: None

PATIENT
  Age: 5 Year
  Sex: Female
  Weight: 12.9 kg

DRUGS (8)
  1. CYCLOPHOSPHAMIDE [Suspect]
  2. CYTARABINE [Suspect]
  3. DEXAMETHASONE [Suspect]
  4. DOXORUBICIN HYDROCHLORIDE [Suspect]
  5. METHOTREXATE [Suspect]
  6. PEG-L-ASPARAGINASE (PEGASPARGASE, ONCOSPAR) [Suspect]
  7. THIOGUANINE [Suspect]
  8. VINCRISTINE SULFATE [Suspect]

REACTIONS (4)
  - Pancytopenia [None]
  - Pyrexia [None]
  - Gallbladder disorder [None]
  - Abdominal pain [None]
